FAERS Safety Report 25431535 (Version 1)
Quarter: 2025Q2

REPORT INFORMATION
  Report Type: Spontaneous
  Country: US (occurrence: US)
  Receive Date: 20250613
  Receipt Date: 20250613
  Transmission Date: 20250716
  Serious: Yes (Life-Threatening, Hospitalization, Other)
  Sender: AMGEN
  Company Number: US-AMGEN-USASP2025109840

PATIENT
  Age: 31 Year
  Sex: Male

DRUGS (8)
  1. PREDNISONE [Suspect]
     Active Substance: PREDNISONE
     Indication: Immunosuppressant drug therapy
     Dosage: UNK UNK, QD
     Route: 065
  2. TACROLIMUS [Concomitant]
     Active Substance: TACROLIMUS
     Dosage: UNK UNK, QD
     Route: 065
  3. MYFORTIC [Concomitant]
     Active Substance: MYCOPHENOLATE SODIUM
     Dosage: UNK UNK, QD
     Route: 065
  4. PROPOFOL [Concomitant]
     Active Substance: PROPOFOL
  5. SUCCINYLCHOLINE [Concomitant]
     Active Substance: SUCCINYLCHOLINE
  6. FENTANYL [Concomitant]
     Active Substance: FENTANYL
  7. ALBUTEROL [Concomitant]
     Active Substance: ALBUTEROL
  8. SEVOFLURANE [Concomitant]
     Active Substance: SEVOFLURANE

REACTIONS (3)
  - Acute respiratory failure [Unknown]
  - Metapneumovirus pneumonia [Recovered/Resolved]
  - Umbilical hernia [Unknown]
